FAERS Safety Report 7420739-3 (Version None)
Quarter: 2011Q2

REPORT INFORMATION
  Report Type: 
  Country: None (occurrence: None)
  Receive Date: 20110418
  Receipt Date: 20110407
  Transmission Date: 20111010
  Serious: Yes (Hospitalization)
  Sender: FDA-Public Use
  Company Number: US-BRISTOL-MYERS SQUIBB COMPANY-15658925

PATIENT
  Age: 6 Year
  Sex: Male
  Weight: 35 kg

DRUGS (5)
  1. VINCRISTINE SULFATE [Suspect]
     Indication: ACUTE LYMPHOCYTIC LEUKAEMIA
     Dosage: NO OF COURSES:1, LAST ADMINISTERED DOSE ON 14MAR11 1.5MG/M2 ON DAYS 15 AND 22.
     Dates: start: 20110307
  2. METHOTREXATE [Suspect]
     Indication: ACUTE LYMPHOCYTIC LEUKAEMIA
     Dosage: NO OF COURSES:1, LAST ADMINISTERED DOSE ON 21MAR11 12MG ON DAY 29.
     Route: 037
     Dates: start: 20110307
  3. DAUNORUBICIN HCL [Suspect]
     Indication: ACUTE LYMPHOCYTIC LEUKAEMIA
     Dosage: NO OF COURSES :1, LAST ADMINISTERED DOSE ON 14MAR11 25MG/M2 ON DAYS 15 AND 22.
     Dates: start: 20110307
  4. PREDNISONE [Suspect]
     Indication: ACUTE LYMPHOCYTIC LEUKAEMIA
     Dosage: NO OF COURSES:1, LAST ADMINISTERED DOSE ON 20MAR11 30MG/M2 BID ON DAYS 15-28.
     Dates: start: 20110307
  5. SPRYCEL [Suspect]
     Indication: ACUTE LYMPHOCYTIC LEUKAEMIA
     Dosage: NO OF COURSES:1, LAST ADMINISTERED DOSE ON 20MAR11 60MG/M2 DAILY FROM DAY 15-28.
     Dates: start: 20110307

REACTIONS (1)
  - HYPONATRAEMIA [None]
